FAERS Safety Report 4612181-5 (Version None)
Quarter: 2005Q1

REPORT INFORMATION
  Report Type: 
  Country: None (occurrence: None)
  Receive Date: 20050308
  Receipt Date: 20041123
  Transmission Date: 20050727
  Serious: Yes (Other)
  Sender: FDA-Public Use
  Company Number: 2004UW24138

PATIENT
  Age: 64 Year
  Sex: Female
  Weight: 81.646 kg

DRUGS (12)
  1. CRESTOR [Suspect]
     Indication: HYPERCHOLESTEROLAEMIA
     Dosage: 10 MG PO
     Route: 048
     Dates: start: 20041001
  2. WARFARIN SODIUM [Concomitant]
  3. NEXIUM [Concomitant]
  4. LASIX [Concomitant]
  5. LEVOXYL [Concomitant]
  6. HYDROPROGESTERONE [Concomitant]
  7. AVAPRO [Concomitant]
  8. ATENOLOL [Concomitant]
  9. PREDNISONE [Concomitant]
  10. DIGITEX [Concomitant]
  11. PREMARIN [Concomitant]
  12. AZATHIOPRINE [Concomitant]

REACTIONS (1)
  - RECTAL HAEMORRHAGE [None]
